FAERS Safety Report 4696617-X (Version None)
Quarter: 2005Q2

REPORT INFORMATION
  Report Type: 
  Country: None (occurrence: None)
  Receive Date: 20050620
  Receipt Date: 20041228
  Transmission Date: 20051028
  Serious: Yes (Other)
  Sender: FDA-Public Use
  Company Number: 200419839US

PATIENT
  Age: 65 Year
  Sex: Male
  Weight: 91 kg

DRUGS (3)
  1. LANTUS [Suspect]
     Indication: DIABETES MELLITUS
     Dosage: 40 U QPM INJ
     Dates: start: 20030101
  2. METFORMIN HCL [Concomitant]
  3. GLUCOTROL [Concomitant]

REACTIONS (2)
  - BLOOD GLUCOSE INCREASED [None]
  - HYPOGLYCAEMIA [None]
